FAERS Safety Report 11272468 (Version 2)
Quarter: 2015Q3

REPORT INFORMATION
  Report Type: Spontaneous
  Country: US (occurrence: US)
  Receive Date: 20150715
  Receipt Date: 20150803
  Transmission Date: 20151125
  Serious: No
  Sender: FDA-Public Use
  Company Number: US-AMGEN-USASP2015069857

PATIENT
  Age: 47 Year
  Sex: Female

DRUGS (2)
  1. ENBREL [Suspect]
     Active Substance: ETANERCEPT
     Indication: RHEUMATOID ARTHRITIS
     Dosage: 50 MG, QWK
     Route: 065
     Dates: start: 20150706
  2. METHOTREXATE (METHOTREXATE SODIUM) [Concomitant]
     Active Substance: METHOTREXATE SODIUM
     Dosage: UNK

REACTIONS (10)
  - Oropharyngeal spasm [Unknown]
  - Fear [Unknown]
  - Drug dose omission [Unknown]
  - Lymphadenopathy [Unknown]
  - Injection site reaction [Unknown]
  - Injection site urticaria [Unknown]
  - Influenza like illness [Unknown]
  - Abdominal discomfort [Unknown]
  - Abdominal pain [Unknown]
  - Injection site bruising [Unknown]
